FAERS Safety Report 6608396-7 (Version None)
Quarter: 2010Q1

REPORT INFORMATION
  Report Type: 
  Country: None (occurrence: None)
  Receive Date: 20100225
  Receipt Date: 20100225
  Transmission Date: 20100710
  Serious: Yes (Other)
  Sender: FDA-Public Use
  Company Number: None

PATIENT
  Sex: Male

DRUGS (1)
  1. XOLAIR [Suspect]
     Indication: ASTHMA
     Dosage: 250MG EVERY 4TH WEEK SUBQ
     Route: 058
     Dates: start: 20070306, end: 20100215

REACTIONS (1)
  - SKIN REACTION [None]
